FAERS Safety Report 6296957-7 (Version None)
Quarter: 2009Q3

REPORT INFORMATION
  Report Type: 
  Country: None (occurrence: None)
  Receive Date: 20090727
  Receipt Date: 20090724
  Transmission Date: 20100115
  Serious: Yes (Hospitalization)
  Sender: FDA-Public Use
  Company Number: 2009020171

PATIENT
  Sex: Female

DRUGS (1)
  1. VIVAGLOBIN [Suspect]

REACTIONS (1)
  - RENAL FAILURE [None]
